FAERS Safety Report 14696194 (Version 1)
Quarter: 2018Q1

REPORT INFORMATION
  Report Type: Spontaneous
  Country: US (occurrence: US)
  Receive Date: 20180329
  Receipt Date: 20180329
  Transmission Date: 20180509
  Serious: No
  Sender: FDA-Public Use
  Company Number: US-SA-2018SA014555

PATIENT
  Age: 68 Year
  Sex: Female

DRUGS (2)
  1. ALLEGRA D-12 HOUR [Suspect]
     Active Substance: FEXOFENADINE HYDROCHLORIDE\PSEUDOEPHEDRINE HYDROCHLORIDE
     Indication: HEAD DISCOMFORT
     Dosage: DOSE:60MG/ 120MG NOT EVERY DAY, 1 PILL 1 OR 2 TIMES A DAY
     Route: 048
     Dates: start: 20170312, end: 20180110
  2. ALLEGRA D-12 HOUR [Suspect]
     Active Substance: FEXOFENADINE HYDROCHLORIDE\PSEUDOEPHEDRINE HYDROCHLORIDE
     Indication: HEAD DISCOMFORT
     Dosage: DOSE:60MG/ 120MG NOT EVERY DAY, 1 PILL 1 OR 2 TIMES A DAY
     Route: 048
     Dates: start: 20170312, end: 20180110

REACTIONS (2)
  - Expired product administered [Unknown]
  - Medication residue present [Recovered/Resolved]
